FAERS Safety Report 4397069-X (Version None)
Quarter: 2004Q3

REPORT INFORMATION
  Report Type: 
  Country: None (occurrence: None)
  Receive Date: 20040708
  Receipt Date: 20040625
  Transmission Date: 20050211
  Serious: Yes (Death)
  Sender: FDA-Public Use
  Company Number: JP-JNJFOC-20040202761

PATIENT
  Age: 80 Year
  Sex: Female
  Weight: 55 kg

DRUGS (5)
  1. REMICADE [Suspect]
     Indication: RHEUMATOID ARTHRITIS
     Dosage: 165 MG, 1 IN 1 AS NECESSARY, INTRAVENOUS DRIP
     Route: 041
     Dates: start: 20030918, end: 20030918
  2. REMICADE [Suspect]
     Indication: RHEUMATOID ARTHRITIS
     Dosage: 165 MG, 1 IN 1 AS NECESSARY, INTRAVENOUS DRIP
     Route: 041
     Dates: start: 20031001, end: 20031001
  3. REMICADE [Suspect]
     Indication: RHEUMATOID ARTHRITIS
     Dosage: 165 MG, 1 IN 1 AS NECESSARY, INTRAVENOUS DRIP
     Route: 041
     Dates: start: 20031029, end: 20031029
  4. RHEUMATREX [Suspect]
     Dosage: SEE IMAGE
     Route: 048
     Dates: start: 20011221, end: 20020709
  5. RHEUMATREX [Suspect]
     Dosage: SEE IMAGE
     Route: 048
     Dates: start: 20020710, end: 20031210

REACTIONS (12)
  - BETA HAEMOLYTIC STREPTOCOCCAL INFECTION [None]
  - DEPRESSED LEVEL OF CONSCIOUSNESS [None]
  - DIARRHOEA [None]
  - DRUG INTERACTION [None]
  - ESCHERICHIA INFECTION [None]
  - LOSS OF CONSCIOUSNESS [None]
  - MYDRIASIS [None]
  - PNEUMONIA KLEBSIELLA [None]
  - RESUSCITATION [None]
  - SEPSIS [None]
  - SHOCK [None]
  - URINARY TRACT INFECTION [None]
